FAERS Safety Report 20602074 (Version 1)
Quarter: 2022Q1

REPORT INFORMATION
  Report Type: Spontaneous
  Country: US (occurrence: US)
  Receive Date: 20220316
  Receipt Date: 20220316
  Transmission Date: 20220424
  Serious: Yes (Life-Threatening, Other)
  Sender: FDA-Public Use
  Company Number: US-AMERICAN REGENT INC-2022000704

PATIENT
  Sex: Female
  Weight: 110.9 kg

DRUGS (21)
  1. FERRIC CARBOXYMALTOSE [Suspect]
     Active Substance: FERRIC CARBOXYMALTOSE
     Indication: Iron deficiency anaemia
     Dosage: 750 MILLIGRAM, SINGLE
     Route: 042
     Dates: start: 20190530, end: 20190530
  2. FERRIC CARBOXYMALTOSE [Suspect]
     Active Substance: FERRIC CARBOXYMALTOSE
     Dosage: 750 MILLIGRAM, SINGLE
     Route: 042
     Dates: start: 20190606, end: 20190606
  3. PEPCID [Concomitant]
     Active Substance: FAMOTIDINE
     Indication: Premedication
     Dosage: 20 MILLIGRAM, SINGLE
     Route: 048
     Dates: start: 20190530, end: 20190530
  4. PEPCID [Concomitant]
     Active Substance: FAMOTIDINE
     Dosage: 20 MILLIGRAM, SINGLE
     Route: 065
     Dates: start: 20190606, end: 20190606
  5. PEPCID [Concomitant]
     Active Substance: FAMOTIDINE
     Dosage: 20 MILLIGRAM, SINGLE
     Route: 065
     Dates: start: 20190613, end: 20190613
  6. BENADRYL [Concomitant]
     Active Substance: DIPHENHYDRAMINE HYDROCHLORIDE
     Indication: Premedication
     Dosage: 25 MILLIGRAM, SINGLE
     Route: 048
     Dates: start: 20190530, end: 20190530
  7. BENADRYL [Concomitant]
     Active Substance: DIPHENHYDRAMINE HYDROCHLORIDE
     Dosage: 25 MILLIGRAM, SINGLE
     Route: 048
     Dates: start: 20190606, end: 20190606
  8. BENADRYL [Concomitant]
     Active Substance: DIPHENHYDRAMINE HYDROCHLORIDE
     Dosage: 25 MILLIGRAM, SINGLE
     Route: 048
     Dates: start: 20190613, end: 20190613
  9. TYLENOL [Concomitant]
     Active Substance: ACETAMINOPHEN
     Indication: Premedication
     Dosage: 650 MILLIGRAM, SINGLE
     Route: 048
     Dates: start: 20190530, end: 20190530
  10. TYLENOL [Concomitant]
     Active Substance: ACETAMINOPHEN
     Dosage: 650 MILLIGRAM, SINGLE
     Route: 065
     Dates: start: 20190606, end: 20190606
  11. TYLENOL [Concomitant]
     Active Substance: ACETAMINOPHEN
     Dosage: 650 MILLIGRAM, SINGLE
     Route: 065
     Dates: start: 20190613, end: 20190613
  12. CYANOCOBALAMIN [Concomitant]
     Active Substance: CYANOCOBALAMIN
     Indication: Vitamin B12 deficiency
     Dosage: 1 ML WEEKLY
     Route: 030
  13. HYDROXYZINE HYDROCHLORIDE [Concomitant]
     Active Substance: HYDROXYZINE HYDROCHLORIDE
     Indication: Anxiety
     Dosage: 1 TABLET TWICE A DAY
     Route: 048
  14. PAXIL [Concomitant]
     Active Substance: PAROXETINE HYDROCHLORIDE
     Indication: Depression
     Dosage: 10 MILLIGRAM, BID
     Route: 048
  15. PAXIL [Concomitant]
     Active Substance: PAROXETINE HYDROCHLORIDE
     Indication: Anxiety
     Dosage: 1 TABLET QD BEFORE SLEEP
     Route: 048
  16. SYNTHROID [Concomitant]
     Active Substance: LEVOTHYROXINE SODIUM
     Indication: Hypothyroidism
     Dosage: 125 MICROGRAM, QD
     Route: 048
  17. ZYRTEC [Concomitant]
     Active Substance: CETIRIZINE HYDROCHLORIDE
     Indication: Product used for unknown indication
     Dosage: 10 MG NIGHTLY
     Route: 048
  18. ACETAMINOPHEN [Concomitant]
     Active Substance: ACETAMINOPHEN
     Indication: Pain
     Dosage: 1 TABLET, THREE TIMES A DAY
     Route: 048
  19. VITAMIN D2 [Concomitant]
     Active Substance: ERGOCALCIFEROL
     Indication: Vitamin D deficiency
     Dosage: 50,000 UNITS WEEKLY
     Route: 048
  20. PREVACID [Concomitant]
     Active Substance: LANSOPRAZOLE
     Indication: Dyspepsia
     Dosage: 30 MILLIGRAM, QD
     Route: 048
  21. ALEVE [Concomitant]
     Active Substance: NAPROXEN SODIUM
     Indication: Pain
     Dosage: UNK
     Route: 065

REACTIONS (10)
  - Asthenia [Unknown]
  - Pain in extremity [Unknown]
  - Muscle spasms [Unknown]
  - Myalgia [Unknown]
  - Memory impairment [Unknown]
  - Hypophosphataemia [Unknown]
  - Pyrexia [Unknown]
  - Dizziness [Unknown]
  - Abdominal pain [Unknown]
  - Palpitations [Unknown]

NARRATIVE: CASE EVENT DATE: 20190101
